FAERS Safety Report 5775757-8 (Version None)
Quarter: 2008Q2

REPORT INFORMATION
  Report Type: 
  Country: None (occurrence: None)
  Receive Date: 20080617
  Receipt Date: 20080616
  Transmission Date: 20081010
  Serious: Yes (Hospitalization)
  Sender: FDA-Public Use
  Company Number: IN-BOEHRINGER INGELHEIM GMBH, GERMANY-2007-BP-22223SG

PATIENT
  Sex: Male
  Weight: 52 kg

DRUGS (4)
  1. TIOTROPIUM RESPIMAT (BLIND) [Suspect]
     Indication: CHRONIC OBSTRUCTIVE PULMONARY DISEASE
     Route: 055
     Dates: start: 20070803, end: 20070922
  2. PLACEBO RESPIMAT (BLIND) [Suspect]
     Indication: CHRONIC OBSTRUCTIVE PULMONARY DISEASE
     Route: 055
     Dates: start: 20070803, end: 20070922
  3. SEROFLO [Concomitant]
     Indication: CHRONIC OBSTRUCTIVE PULMONARY DISEASE
     Dosage: 250/50 MCG
     Route: 055
     Dates: start: 20010120
  4. AMLOZ [Concomitant]
     Indication: HYPERTENSION
     Route: 048
     Dates: start: 20070727

REACTIONS (2)
  - MONOPARESIS [None]
  - TRANSIENT ISCHAEMIC ATTACK [None]
